FAERS Safety Report 7910249-9 (Version None)
Quarter: 2011Q4

REPORT INFORMATION
  Report Type: 
  Country: None (occurrence: None)
  Receive Date: 20111111
  Receipt Date: 20111109
  Transmission Date: 20120403
  Serious: Yes (Other)
  Sender: FDA-Public Use
  Company Number: ES-ROCHE-1011355

PATIENT
  Sex: Female

DRUGS (2)
  1. AVASTIN [Suspect]
     Indication: BREAST CANCER
     Dosage: UNKNOWN
  2. TAXOTERE [Suspect]
     Indication: BREAST CANCER
     Dosage: UNKNOWN

REACTIONS (1)
  - SKIN NECROSIS [None]
